FAERS Safety Report 4976601-9 (Version None)
Quarter: 2006Q2

REPORT INFORMATION
  Report Type: 
  Country: None (occurrence: None)
  Receive Date: 20060412
  Receipt Date: 20060328
  Transmission Date: 20061013
  Serious: Yes (Life-Threatening)
  Sender: FDA-Public Use
  Company Number: DSA_70885_2006

PATIENT
  Age: 48 Year
  Sex: Male

DRUGS (8)
  1. DARVOCET-N 100 [Suspect]
     Indication: PROCEDURAL PAIN
     Dosage: 2 TAB ONCE PO
     Route: 048
  2. METOPROLOL SUCCINATE [Suspect]
     Dosage: 100 MG QDAY PO
     Route: 048
  3. DILTIAZEM HCL [Concomitant]
  4. ATORVASTATIN CALCIUM [Concomitant]
  5. LEVOTHYROXINE SODIUM [Concomitant]
  6. FOSINOPRIL [Concomitant]
  7. AMITRIPTYLINE HCL [Concomitant]
  8. WARFARIN SODIUM [Concomitant]

REACTIONS (5)
  - ATRIAL FIBRILLATION [None]
  - BRADYCARDIA [None]
  - DIZZINESS [None]
  - DRUG INTERACTION [None]
  - HYPERHIDROSIS [None]
